FAERS Safety Report 16395406 (Version 1)
Quarter: 2019Q3

REPORT INFORMATION
  Report Type: Spontaneous
  Country: US (occurrence: US)
  Receive Date: 20190604
  Receipt Date: 20190604
  Transmission Date: 20191004
  Serious: Yes (Other)
  Sender: FDA-Public Use
  Company Number: None

PATIENT
  Age: 25 Year
  Sex: Female
  Weight: 90.72 kg

DRUGS (3)
  1. PARAGARD T 380A [Suspect]
     Active Substance: COPPER
     Dates: start: 20150812, end: 20190318
  2. LAMICTAL [Concomitant]
     Active Substance: LAMOTRIGINE
  3. PRISTIQ EXTENDED-RELEASE [Concomitant]
     Active Substance: DESVENLAFAXINE SUCCINATE

REACTIONS (5)
  - Cold sweat [None]
  - Pain [None]
  - Muscle spasms [None]
  - Abdominal pain [None]
  - Uterine pain [None]

NARRATIVE: CASE EVENT DATE: 20190301
